FAERS Safety Report 13212040 (Version 16)
Quarter: 2017Q3

REPORT INFORMATION
  Report Type: Report from Study
  Country: BR (occurrence: BR)
  Receive Date: 20170210
  Receipt Date: 20170810
  Transmission Date: 20171127
  Serious: Yes (Life-Threatening, Hospitalization, Disabling, Other)
  Sender: FDA-Public Use
  Company Number: BR-ALEXION PHARMACEUTICALS INC.-A201701294

PATIENT
  Age: 29 Year
  Sex: Female
  Weight: 88 kg

DRUGS (10)
  1. SOLIRIS [Suspect]
     Active Substance: ECULIZUMAB
     Indication: PAROXYSMAL NOCTURNAL HAEMOGLOBINURIA
     Dosage: 600 MG, FOR 4 WEEKS
     Route: 042
     Dates: start: 20141105, end: 20141226
  2. SOLIRIS [Suspect]
     Active Substance: ECULIZUMAB
     Dosage: 900 MG, Q2W
     Route: 042
     Dates: start: 20141230
  3. PREDNISONE. [Concomitant]
     Active Substance: PREDNISONE
     Indication: ANAEMIA
     Dosage: 40 MG, QD
     Route: 048
  4. PEN V                              /00001801/ [Concomitant]
     Active Substance: PENICILLIN V
     Indication: ANTIBIOTIC PROPHYLAXIS
     Dosage: 1 TABLET OR CAPSULE, Q12H
     Route: 048
  5. FOLIC ACID. [Concomitant]
     Active Substance: FOLIC ACID
     Indication: ANAEMIA
     Dosage: 1 TABLET OR CAPSULE, QD
     Route: 048
  6. SOLIRIS [Suspect]
     Active Substance: ECULIZUMAB
     Dosage: 600 MG, UNK
     Route: 065
     Dates: start: 20170405
  7. SOLIRIS [Suspect]
     Active Substance: ECULIZUMAB
     Dosage: 1200 MG, Q2W
     Route: 065
  8. PREDNISONE. [Concomitant]
     Active Substance: PREDNISONE
     Indication: BURSITIS
  9. CLEXANE [Concomitant]
     Active Substance: ENOXAPARIN SODIUM
     Indication: THROMBOSIS
     Dosage: 70 MG, Q12H
     Route: 065
  10. CLEXANE [Concomitant]
     Active Substance: ENOXAPARIN SODIUM
     Indication: ANTICOAGULANT THERAPY
     Dosage: 60 MG, Q12H
     Route: 058

REACTIONS (46)
  - Hepatic vein thrombosis [Not Recovered/Not Resolved]
  - Vaginal haemorrhage [Not Recovered/Not Resolved]
  - Infusion related reaction [Unknown]
  - Influenza [Recovered/Resolved]
  - Haemoglobin decreased [Unknown]
  - Ascites [Unknown]
  - Bursitis [Not Recovered/Not Resolved]
  - General symptom [Unknown]
  - Splenomegaly [Unknown]
  - Dysphonia [Recovering/Resolving]
  - Hypertension [Unknown]
  - Hypersensitivity [Recovered/Resolved]
  - Anaphylactic reaction [Not Recovered/Not Resolved]
  - Drug specific antibody present [Unknown]
  - Inappropriate schedule of drug administration [Recovered/Resolved]
  - Hyperglycaemia [Unknown]
  - Abdominal pain [Recovering/Resolving]
  - Feeding disorder [Not Recovered/Not Resolved]
  - Fatigue [Not Recovered/Not Resolved]
  - Headache [Not Recovered/Not Resolved]
  - Thrombosis [Not Recovered/Not Resolved]
  - Malaise [Not Recovered/Not Resolved]
  - Asthenia [Not Recovered/Not Resolved]
  - Haptoglobin decreased [Unknown]
  - Hypotension [Recovered/Resolved]
  - Chromaturia [Not Recovered/Not Resolved]
  - Peripheral swelling [Unknown]
  - Gastritis [Not Recovered/Not Resolved]
  - Pruritus generalised [Unknown]
  - Hallucination [Recovered/Resolved]
  - Pain [Not Recovered/Not Resolved]
  - Abdominal distension [Unknown]
  - Back pain [Not Recovered/Not Resolved]
  - Decreased appetite [Not Recovered/Not Resolved]
  - Platelet count decreased [Unknown]
  - Fibrin D dimer increased [Unknown]
  - Blood lactate dehydrogenase increased [Unknown]
  - Blood pressure increased [Unknown]
  - Pyrexia [Recovered/Resolved]
  - Haemolysis [Not Recovered/Not Resolved]
  - Incorrect dose administered [Unknown]
  - Condition aggravated [Unknown]
  - Somnolence [Not Recovered/Not Resolved]
  - Swelling face [Unknown]
  - Throat irritation [Recovering/Resolving]
  - Nausea [Not Recovered/Not Resolved]

NARRATIVE: CASE EVENT DATE: 20170127
